FAERS Safety Report 11567599 (Version 1)
Quarter: 2015Q3

REPORT INFORMATION
  Report Type: Report from Study
  Country: BR (occurrence: BR)
  Receive Date: 20150929
  Receipt Date: 20150929
  Transmission Date: 20151125
  Serious: Yes (Hospitalization)
  Sender: FDA-Public Use
  Company Number: BR-ROCHE-1434745

PATIENT
  Sex: Female
  Weight: 90 kg

DRUGS (4)
  1. MABTHERA [Suspect]
     Active Substance: RITUXIMAB
     Indication: RHEUMATOID ARTHRITIS
     Dosage: STRENGTH 100 MG/10 ML?DOSE 2 VIALS
     Route: 065
     Dates: start: 20130305
  2. LOSARTAN POTASSIUM. [Concomitant]
     Active Substance: LOSARTAN POTASSIUM
  3. CALCIUM D3 [Concomitant]
     Active Substance: CALCIUM\CHOLECALCIFEROL
  4. MABTHERA [Suspect]
     Active Substance: RITUXIMAB
     Dosage: STRENGTH 100 MG/10 ML?DOSE 2 VIALS
     Route: 065
     Dates: start: 20130318

REACTIONS (5)
  - Influenza [Not Recovered/Not Resolved]
  - Drug dose omission [Unknown]
  - Dizziness [Not Recovered/Not Resolved]
  - Aphasia [Not Recovered/Not Resolved]
  - Thyroid neoplasm [Unknown]
